FAERS Safety Report 5626607-1 (Version None)
Quarter: 2008Q1

REPORT INFORMATION
  Report Type: 
  Country: None (occurrence: None)
  Receive Date: 20080214
  Receipt Date: 20080204
  Transmission Date: 20080703
  Serious: Yes (Hospitalization)
  Sender: FDA-Public Use
  Company Number: US-ELI_LILLY_AND_COMPANY-US200801001374

PATIENT
  Sex: Female

DRUGS (18)
  1. CYMBALTA [Suspect]
     Dosage: 30 MG, EACH EVENING
  2. CYMBALTA [Suspect]
     Dosage: 1 D/F, UNK
  3. CATAPRES /USA/ [Concomitant]
     Dosage: 0.3 MG, 2/W
     Route: 062
  4. SYNTHROID [Concomitant]
     Dosage: 0.125 MG, DAILY (1/D)
  5. ADVAIR DISKUS 100/50 [Concomitant]
     Dosage: UNK, 2/D
  6. ASPIRIN [Concomitant]
     Dosage: 325 MG, UNK
  7. COREG [Concomitant]
     Dosage: 25 MG, 2/D
  8. COZAAR [Concomitant]
     Dosage: 100 MG, DAILY (1/D)
  9. COLACE [Concomitant]
     Dosage: 100 MG, EACH EVENING
  10. HYDRALAZINE HCL [Concomitant]
     Dosage: 75 MG, EVERY 8 HRS
  11. NEPHROCAPS [Concomitant]
     Dosage: UNK, DAILY (1/D)
  12. ACIPHEX [Concomitant]
     Dosage: 20 MG, 2/D
  13. CLONIDINE [Concomitant]
     Dosage: 0.2 MG, EVERY 8 HRS
     Route: 048
  14. HYDROCORTISONE [Concomitant]
     Dosage: 10 MG, EACH MORNING
  15. HYDROCORTISONE [Concomitant]
     Dosage: 5 MG, 2/D
  16. IMDUR [Concomitant]
     Dosage: 90 MG, DAILY (1/D)
  17. CLARITIN [Concomitant]
     Dosage: 10 MG, DAILY (1/D)
  18. BENADRYL [Concomitant]
     Dosage: 25 MG, EACH EVENING

REACTIONS (1)
  - SEPSIS [None]
